FAERS Safety Report 7310230-7 (Version None)
Quarter: 2011Q1

REPORT INFORMATION
  Report Type: 
  Country: None (occurrence: None)
  Receive Date: 20110224
  Receipt Date: 20110216
  Transmission Date: 20110831
  Serious: Yes (Hospitalization)
  Sender: FDA-Public Use
  Company Number: US-ABBOTT-11P-163-0705978-00

PATIENT
  Sex: Female
  Weight: 58.566 kg

DRUGS (10)
  1. ATENOLOL [Concomitant]
     Indication: TACHYCARDIA
  2. ESTRADIOL [Concomitant]
     Indication: HORMONE REPLACEMENT THERAPY
  3. METHOTREXATE [Concomitant]
     Indication: RHEUMATOID ARTHRITIS
  4. HUMIRA [Suspect]
     Indication: RHEUMATOID ARTHRITIS
     Dosage: ON HOLD FOR EVENT
     Dates: start: 20110110
  5. LEUKOVORIN [Concomitant]
     Indication: RHEUMATOID ARTHRITIS
  6. FLEXERIL [Concomitant]
     Indication: RHEUMATOID ARTHRITIS
  7. NEXIUM [Concomitant]
     Indication: ULCER
  8. ADVAIR HFA [Concomitant]
     Indication: ASTHMA
  9. SINGULAIR [Concomitant]
     Indication: ASTHMA
  10. GLUMETZA [Concomitant]
     Indication: DIABETES MELLITUS
     Dates: start: 20100101

REACTIONS (9)
  - TACHYCARDIA [None]
  - BACK PAIN [None]
  - ARTHRITIS [None]
  - RESPIRATORY TRACT CONGESTION [None]
  - DYSPNOEA [None]
  - PYREXIA [None]
  - PNEUMONIA RESPIRATORY SYNCYTIAL VIRAL [None]
  - EYE PAIN [None]
  - BONE PAIN [None]
